FAERS Safety Report 12487644 (Version 1)
Quarter: 2016Q2

REPORT INFORMATION
  Report Type: Spontaneous
  Country: US (occurrence: None)
  Receive Date: 20160621
  Receipt Date: 20160621
  Transmission Date: 20160815
  Serious: Yes (Hospitalization)
  Sender: FDA-Public Use
  Company Number: None

PATIENT
  Age: 68 Year
  Sex: Male
  Weight: 78.8 kg

DRUGS (1)
  1. RIVAROXABAN [Suspect]
     Active Substance: RIVAROXABAN
     Indication: PULMONARY EMBOLISM
     Route: 048
     Dates: start: 20160221, end: 20160302

REACTIONS (5)
  - Anaemia [None]
  - Constipation [None]
  - Contusion [None]
  - Cough [None]
  - Abdominal wall haematoma [None]

NARRATIVE: CASE EVENT DATE: 20160302
